FAERS Safety Report 26117362 (Version 2)
Quarter: 2025Q4

REPORT INFORMATION
  Report Type: Spontaneous
  Country: US (occurrence: US)
  Receive Date: 20251203
  Receipt Date: 20251222
  Transmission Date: 20260117
  Serious: Yes (Life-Threatening, Hospitalization, Disabling, Other)
  Sender: PFIZER
  Company Number: US-MLMSERVICE-20251110-PI708439-00175-1

PATIENT
  Age: 74 Year
  Sex: Male
  Weight: 78 kg

DRUGS (4)
  1. HEPARIN SODIUM [Suspect]
     Active Substance: HEPARIN SODIUM
     Indication: Anticoagulant therapy
     Dosage: 80 IU/KG (INITIAL BOLUS WITH SUBSEQUENT BOLUSES TO MAINTAIN ACT (ACTIVATED CLOTTING TIME) OF 250)
     Route: 042
  2. HEPARIN SODIUM [Suspect]
     Active Substance: HEPARIN SODIUM
     Indication: Coronary artery bypass
  3. AMIODARONE [Concomitant]
     Active Substance: AMIODARONE
     Indication: Coronary artery bypass
     Dosage: UNK
  4. LIDOCAINE [Concomitant]
     Active Substance: LIDOCAINE
     Indication: Coronary artery bypass
     Dosage: UNK

REACTIONS (2)
  - Heparin-induced thrombocytopenia [Recovered/Resolved]
  - Peripheral ischaemia [Recovering/Resolving]
